FAERS Safety Report 5213198-2 (Version None)
Quarter: 2007Q1

REPORT INFORMATION
  Report Type: 
  Country: None (occurrence: None)
  Receive Date: 20070119
  Receipt Date: 20070112
  Transmission Date: 20070707
  Serious: Yes (Other)
  Sender: FDA-Public Use
  Company Number: GB-GLAXOSMITHKLINE-B0454047A

PATIENT
  Sex: Male

DRUGS (3)
  1. COMBIVIR [Suspect]
     Indication: HIV INFECTION
     Route: 048
  2. TRIZIVIR [Suspect]
     Indication: HIV INFECTION
     Route: 048
  3. SUSTIVA [Concomitant]

REACTIONS (2)
  - HEPATIC ENZYME INCREASED [None]
  - NIGHTMARE [None]
